FAERS Safety Report 6725200-7 (Version None)
Quarter: 2010Q2

REPORT INFORMATION
  Report Type: 
  Country: None (occurrence: None)
  Receive Date: 20100514
  Receipt Date: 20100505
  Transmission Date: 20101027
  Serious: Yes (Hospitalization, Other)
  Sender: FDA-Public Use
  Company Number: PHHY2010US29954

PATIENT
  Sex: Female

DRUGS (1)
  1. EXELON [Suspect]
     Dosage: UNK
     Route: 062

REACTIONS (3)
  - HYPERTENSION [None]
  - UNRESPONSIVE TO STIMULI [None]
  - WRONG TECHNIQUE IN DRUG USAGE PROCESS [None]
